FAERS Safety Report 8113579-3 (Version None)
Quarter: 2012Q1

REPORT INFORMATION
  Report Type: 
  Country: None (occurrence: None)
  Receive Date: 20120203
  Receipt Date: 20120130
  Transmission Date: 20120608
  Serious: Yes (Other)
  Sender: FDA-Public Use
  Company Number: JP-PFIZER INC-2012023894

PATIENT
  Age: 15 Year
  Sex: Female

DRUGS (4)
  1. FRESH FROZEN PLASMA [Concomitant]
  2. FUROSEMIDE [Concomitant]
  3. METHYLPREDNISOLONE [Suspect]
     Indication: HISTIOCYTOSIS HAEMATOPHAGIC
     Dosage: 1 G DAILY
     Route: 042
  4. CICLOSPORIN [Concomitant]

REACTIONS (1)
  - ATRIAL FIBRILLATION [None]
